FAERS Safety Report 19161302 (Version 11)
Quarter: 2022Q4

REPORT INFORMATION
  Report Type: Report from Study
  Country: US (occurrence: None)
  Receive Date: 20210421
  Receipt Date: 20221129
  Transmission Date: 20230113
  Serious: Yes (Hospitalization, Other)
  Sender: FDA-Public Use
  Company Number: US-ROCHE-2808325

PATIENT
  Age: 65 Year
  Sex: Female
  Weight: 73.2 kg

DRUGS (34)
  1. ADO-TRASTUZUMAB EMTANSINE [Suspect]
     Active Substance: ADO-TRASTUZUMAB EMTANSINE
     Indication: Breast cancer metastatic
     Route: 042
     Dates: start: 20210226, end: 20210226
  2. ADO-TRASTUZUMAB EMTANSINE [Suspect]
     Active Substance: ADO-TRASTUZUMAB EMTANSINE
     Route: 042
     Dates: start: 20210227
  3. ADO-TRASTUZUMAB EMTANSINE [Suspect]
     Active Substance: ADO-TRASTUZUMAB EMTANSINE
     Route: 042
     Dates: start: 20210319
  4. ADO-TRASTUZUMAB EMTANSINE [Suspect]
     Active Substance: ADO-TRASTUZUMAB EMTANSINE
     Route: 042
     Dates: start: 20210319, end: 20210319
  5. ADO-TRASTUZUMAB EMTANSINE [Suspect]
     Active Substance: ADO-TRASTUZUMAB EMTANSINE
     Route: 042
     Dates: start: 20210320, end: 20210329
  6. ADO-TRASTUZUMAB EMTANSINE [Suspect]
     Active Substance: ADO-TRASTUZUMAB EMTANSINE
     Route: 042
     Dates: start: 20210326, end: 20210326
  7. TUCATINIB [Suspect]
     Active Substance: TUCATINIB
     Indication: Breast cancer metastatic
     Dosage: LAST DOSE ON 29/MAR/2021, PATIENT RECEIVED TUCATINIB/PLACEBO AND COMPLETED CYCLE(C)2 AND DAY(D)3.?ON
     Route: 048
     Dates: start: 20210226
  8. TUCATINIB [Suspect]
     Active Substance: TUCATINIB
     Route: 048
     Dates: start: 20210227
  9. TUCATINIB [Suspect]
     Active Substance: TUCATINIB
     Route: 048
     Dates: start: 20210319
  10. TUCATINIB [Suspect]
     Active Substance: TUCATINIB
     Route: 048
     Dates: start: 20210319, end: 20210319
  11. TUCATINIB [Suspect]
     Active Substance: TUCATINIB
     Route: 048
     Dates: start: 20210320, end: 20210329
  12. ONDANSETRON HYDROCHLORIDE [Concomitant]
     Active Substance: ONDANSETRON HYDROCHLORIDE
     Dates: start: 20190205
  13. GUAIFENESIN\PSEUDOEPHEDRINE HYDROCHLORIDE [Concomitant]
     Active Substance: GUAIFENESIN\PSEUDOEPHEDRINE HYDROCHLORIDE
     Dates: start: 20041204
  14. OMEPRAZOLE MAGNESIUM [Concomitant]
     Active Substance: OMEPRAZOLE MAGNESIUM
     Dates: start: 20190101
  15. KLOR-CON [Concomitant]
     Active Substance: POTASSIUM CHLORIDE
     Dates: start: 20190117
  16. CITALOPRAM HYDROBROMIDE [Concomitant]
     Active Substance: CITALOPRAM HYDROBROMIDE
     Dates: start: 20190117
  17. NEBIVOLOL [Concomitant]
     Active Substance: NEBIVOLOL
     Dates: start: 20190117
  18. FUROSEMIDE [Concomitant]
     Active Substance: FUROSEMIDE
     Dates: start: 20190117
  19. LORAZEPAM [Concomitant]
     Active Substance: LORAZEPAM
     Dates: start: 20190205
  20. LOSARTAN POTASSIUM [Concomitant]
     Active Substance: LOSARTAN POTASSIUM
     Dates: start: 20190117
  21. GRANISETRON [Concomitant]
     Active Substance: GRANISETRON
     Dates: start: 20190205
  22. SYMBICORT [Concomitant]
     Active Substance: BUDESONIDE\FORMOTEROL FUMARATE DIHYDRATE
     Dates: start: 20190717
  23. ALBUTEROL SULFATE [Concomitant]
     Active Substance: ALBUTEROL SULFATE
     Dates: start: 20190717
  24. OLMESARTAN MEDOXOMIL [Concomitant]
     Active Substance: OLMESARTAN MEDOXOMIL
     Dates: start: 20190117
  25. NORCO [Concomitant]
     Active Substance: ACETAMINOPHEN\HYDROCODONE BITARTRATE
     Dates: start: 20190117
  26. MOMETASONE FUROATE [Concomitant]
     Active Substance: MOMETASONE FUROATE
     Dates: start: 20190717
  27. TRAMADOL [Concomitant]
     Active Substance: TRAMADOL
     Dates: start: 20190117
  28. MIRALAX [Concomitant]
     Active Substance: POLYETHYLENE GLYCOL 3350
     Dates: start: 20190226
  29. LIDOCAINE AND PRILOCAINE [Concomitant]
     Active Substance: LIDOCAINE\PRILOCAINE
     Dates: start: 20190207
  30. ADVIL [Concomitant]
     Active Substance: IBUPROFEN
     Dates: start: 20190117
  31. HYDROMORPHONE HCL [Concomitant]
     Active Substance: HYDROMORPHONE HYDROCHLORIDE
     Dates: start: 20210326
  32. PANTOPRAZOLE SODIUM [Concomitant]
     Active Substance: PANTOPRAZOLE SODIUM
  33. TAXOTERE [Concomitant]
     Active Substance: DOCETAXEL
  34. ACETAMINOPHEN [Concomitant]
     Active Substance: ACETAMINOPHEN

REACTIONS (6)
  - Confusional state [Recovered/Resolved]
  - Metabolic encephalopathy [Recovered/Resolved]
  - Thrombocytopenia [Recovered/Resolved]
  - Drug-induced liver injury [Recovered/Resolved]
  - Aspartate aminotransferase increased [Recovered/Resolved]
  - Alanine aminotransferase increased [Recovered/Resolved]

NARRATIVE: CASE EVENT DATE: 20210331
